FAERS Safety Report 13199186 (Version 1)
Quarter: 2017Q1

REPORT INFORMATION
  Report Type: Spontaneous
  Country: US (occurrence: US)
  Receive Date: 20170208
  Receipt Date: 20170208
  Transmission Date: 20170428
  Serious: No
  Sender: FDA-Public Use
  Company Number: US-AMGEN-USASP2016047303

PATIENT
  Age: 43 Year
  Sex: Female

DRUGS (5)
  1. DOXORUBICIN [Suspect]
     Active Substance: DOXORUBICIN
     Indication: PRODUCT USED FOR UNKNOWN INDICATION
     Dosage: 60 MG/M2, DAY 1OF 14 DAY CYCLE
     Route: 042
     Dates: start: 20081121, end: 20090102
  2. PEGFILGRASTIM [Suspect]
     Active Substance: PEGFILGRASTIM
     Indication: BREAST CANCER
     Dosage: UNK
     Route: 065
     Dates: start: 20081121, end: 20090102
  3. BEVACIZUMAB [Suspect]
     Active Substance: BEVACIZUMAB
     Indication: BREAST CANCER
     Dosage: UNK, OVER 30-90 MINS, DAY 1 OF 14 DAY CYCLE, CYCLE 1-4
     Route: 042
     Dates: start: 20081121
  4. CYCLOPHOSPHAMIDE. [Suspect]
     Active Substance: CYCLOPHOSPHAMIDE
     Indication: BREAST CANCER
     Dosage: 600 MG/M2, DAY 1 OF 14 DAY CYCLE
     Route: 042
     Dates: start: 20081121, end: 20090102
  5. PACLITAXEL. [Suspect]
     Active Substance: PACLITAXEL
     Indication: BREAST CANCER
     Dosage: 80 MG/M2, ON DAY 1, 8 AND 15 OF 21 DAY CYCLE
     Route: 065
     Dates: start: 20081121, end: 20090403

REACTIONS (2)
  - Ejection fraction decreased [Recovered/Resolved]
  - Left ventricular dysfunction [Recovered/Resolved]

NARRATIVE: CASE EVENT DATE: 20090806
